FAERS Safety Report 12423496 (Version 1)
Quarter: 2016Q2

REPORT INFORMATION
  Report Type: Spontaneous
  Country: CA (occurrence: CA)
  Receive Date: 20160601
  Receipt Date: 20160601
  Transmission Date: 20160815
  Serious: Yes (Death, Other)
  Sender: FDA-Public Use
  Company Number: CA-FERRINGPH-2016FE02372

PATIENT

DRUGS (1)
  1. CERVIDIL [Suspect]
     Active Substance: DINOPROSTONE
     Indication: CERVIX ENLARGEMENT
     Dosage: 10 MG, UNK
     Route: 064

REACTIONS (2)
  - Apgar score low [Fatal]
  - Encephalopathy neonatal [Fatal]
